FAERS Safety Report 24989637 (Version 6)
Quarter: 2025Q3

REPORT INFORMATION
  Report Type: Report from Study
  Country: AU (occurrence: AU)
  Receive Date: 20250220
  Receipt Date: 20250704
  Transmission Date: 20251020
  Serious: Yes (Hospitalization, Other)
  Sender: NOVARTIS
  Company Number: AU-002147023-NVSC2022AU136610

PATIENT
  Age: 0 Year
  Sex: Male
  Weight: 6 kg

DRUGS (3)
  1. MEKINIST [Suspect]
     Active Substance: TRAMETINIB DIMETHYL SULFOXIDE
     Indication: Hypertrophic cardiomyopathy
     Dosage: 0.04 MG/KG, QD
     Route: 048
     Dates: start: 20220313
  2. MEKINIST [Suspect]
     Active Substance: TRAMETINIB DIMETHYL SULFOXIDE
     Indication: Costello syndrome
     Dosage: UNK, QD (DOSE INCREASED)
     Route: 048
     Dates: start: 20220318
  3. MEKINIST [Suspect]
     Active Substance: TRAMETINIB DIMETHYL SULFOXIDE
     Dosage: 0.06MG / 0.14MG, QD (DOSE REDUCED)
     Route: 048

REACTIONS (6)
  - Hypotension [Recovered/Resolved]
  - Nausea [Recovered/Resolved]
  - Fatigue [Recovered/Resolved]
  - Irritability [Recovered/Resolved]
  - Illness [Unknown]
  - Hypovolaemia [Unknown]

NARRATIVE: CASE EVENT DATE: 20220811
